FAERS Safety Report 18095074 (Version 5)
Quarter: 2021Q4

REPORT INFORMATION
  Report Type: Spontaneous
  Country: None (occurrence: US)
  Receive Date: 20200730
  Receipt Date: 20211201
  Transmission Date: 20220303
  Serious: No
  Sender: FDA-Public Use
  Company Number: US-AKCEA THERAPEUTICS-2020IS001230

PATIENT
  Age: 76 Year
  Sex: Male

DRUGS (16)
  1. TEGSEDI [Suspect]
     Active Substance: INOTERSEN SODIUM
     Indication: Hereditary neuropathic amyloidosis
     Route: 058
     Dates: start: 20190419
  2. DEVICE [Suspect]
     Active Substance: DEVICE
  3. AMIODARONE [Concomitant]
     Active Substance: AMIODARONE
     Route: 065
  4. ASPIRIN [Concomitant]
     Active Substance: ASPIRIN
     Route: 065
  5. FIORINAL [Concomitant]
     Active Substance: ASPIRIN\BUTALBITAL\CAFFEINE
     Route: 065
  6. LASIX [Concomitant]
     Active Substance: FUROSEMIDE
     Route: 065
  7. GREEN TEA LEAF [Concomitant]
     Active Substance: GREEN TEA LEAF
     Route: 065
  8. LISINOPRIL [Concomitant]
     Active Substance: LISINOPRIL
     Route: 065
  9. TOPROL XL [Concomitant]
     Active Substance: METOPROLOL SUCCINATE
     Route: 065
  10. ALDACTONE [Concomitant]
     Active Substance: SPIRONOLACTONE
     Route: 065
  11. FLOMAX [Concomitant]
     Active Substance: TAMSULOSIN HYDROCHLORIDE
     Route: 065
  12. XARELTO [Concomitant]
     Active Substance: RIVAROXABAN
     Route: 065
  13. TEGSEDI [Suspect]
     Active Substance: INOTERSEN SODIUM
     Route: 058
     Dates: start: 20210806
  14. TEGSEDI [Suspect]
     Active Substance: INOTERSEN SODIUM
     Route: 058
  15. METOPROLOL SUCCINATE [Concomitant]
     Active Substance: METOPROLOL SUCCINATE
     Route: 065
  16. SPIRONOLACTONE [Concomitant]
     Active Substance: SPIRONOLACTONE
     Route: 065

REACTIONS (10)
  - Platelet count decreased [Unknown]
  - Blood creatinine increased [Unknown]
  - Glomerular filtration rate decreased [Not Recovered/Not Resolved]
  - Protein urine present [Unknown]
  - Urine protein/creatinine ratio increased [Unknown]
  - Dizziness [Recovered/Resolved]
  - Puncture site haemorrhage [Recovered/Resolved]
  - Urine abnormality [Unknown]
  - Bacterial test positive [Unknown]
  - Urinary casts [Unknown]

NARRATIVE: CASE EVENT DATE: 20200101
